FAERS Safety Report 8376480-6 (Version None)
Quarter: 2012Q2

REPORT INFORMATION
  Report Type: 
  Country: None (occurrence: None)
  Receive Date: 20120522
  Receipt Date: 20120516
  Transmission Date: 20120825
  Serious: Yes (Other)
  Sender: FDA-Public Use
  Company Number: GR-PFIZER INC-2012118792

PATIENT
  Age: 94 Year
  Sex: Female

DRUGS (1)
  1. XALATAN [Suspect]
     Dosage: UNK

REACTIONS (5)
  - EYELID DISORDER [None]
  - DYSPNOEA [None]
  - EYE PRURITUS [None]
  - CATARACT [None]
  - OCULAR HYPERAEMIA [None]
